FAERS Safety Report 19856112 (Version 1)
Quarter: 2021Q3

REPORT INFORMATION
  Report Type: Spontaneous
  Country: US (occurrence: US)
  Receive Date: 20210920
  Receipt Date: 20210920
  Transmission Date: 20211014
  Serious: No
  Sender: FDA-Public Use
  Company Number: None

PATIENT
  Age: 47 Year
  Sex: Female
  Weight: 58.5 kg

DRUGS (5)
  1. FLUOCINONIDE. [Suspect]
     Active Substance: FLUOCINONIDE
  2. PIMECROLIMUS. [Suspect]
     Active Substance: PIMECROLIMUS
  3. BETAMETHASONE. [Suspect]
     Active Substance: BETAMETHASONE
     Indication: DERMATITIS ATOPIC
     Route: 061
  4. DESONIDE. [Suspect]
     Active Substance: DESONIDE
  5. TRIAMCINOLONE [Suspect]
     Active Substance: TRIAMCINOLONE

REACTIONS (2)
  - Drug ineffective [None]
  - Withdrawal syndrome [None]

NARRATIVE: CASE EVENT DATE: 20210920
